FAERS Safety Report 24386517 (Version 1)
Quarter: 2024Q4

REPORT INFORMATION
  Report Type: Spontaneous
  Country: US (occurrence: US)
  Receive Date: 20241002
  Receipt Date: 20241002
  Transmission Date: 20250114
  Serious: Yes (Other)
  Sender: AMGEN
  Company Number: US-AMGEN-USASP2024193577

PATIENT
  Age: 80 Year
  Sex: Male

DRUGS (1)
  1. BLINCYTO [Suspect]
     Active Substance: BLINATUMOMAB
     Indication: Acute lymphocytic leukaemia
     Dosage: UNK, CONSOLIDATION DOSE, FOURTH CYCLE
     Route: 065

REACTIONS (2)
  - Neurotoxicity [Recovered/Resolved]
  - Confusional state [Unknown]
